FAERS Safety Report 4443418-3 (Version None)
Quarter: 2004Q3

REPORT INFORMATION
  Report Type: 
  Country: None (occurrence: None)
  Receive Date: 20040802
  Receipt Date: 20040602
  Transmission Date: 20050211
  Serious: No
  Sender: FDA-Public Use
  Company Number: 2004-117384-NL

PATIENT
  Age: 24 Year
  Sex: Female

DRUGS (5)
  1. NUVARING [Suspect]
     Indication: CONTRACEPTION
     Dosage: DF DAILY VAGINAL
     Route: 067
     Dates: start: 20040418, end: 20040602
  2. MULTI-VITAMINS [Concomitant]
  3. ESSENTIAL FATTY ACIDS [Concomitant]
  4. VITAMIN C [Concomitant]
  5. GREEN TEA [Concomitant]

REACTIONS (4)
  - FATIGUE [None]
  - JOINT SWELLING [None]
  - OEDEMA PERIPHERAL [None]
  - PARAESTHESIA [None]
